FAERS Safety Report 25563841 (Version 1)
Quarter: 2025Q3

REPORT INFORMATION
  Report Type: Spontaneous
  Country: US (occurrence: US)
  Receive Date: 20250716
  Receipt Date: 20250716
  Transmission Date: 20251020
  Serious: No
  Sender: NOVO NORDISK
  Company Number: US-NOVOPROD-1328547

PATIENT
  Sex: Female

DRUGS (1)
  1. OZEMPIC [Suspect]
     Active Substance: SEMAGLUTIDE
     Indication: Type 2 diabetes mellitus
     Dosage: 1.0 MG (BY TAKING 0.5 MG TWICE) ONCE WEEKLY
     Route: 058
     Dates: start: 2024

REACTIONS (2)
  - Weight loss poor [Unknown]
  - Off label use [Unknown]
